FAERS Safety Report 5671348-8 (Version None)
Quarter: 2008Q1

REPORT INFORMATION
  Report Type: 
  Country: None (occurrence: None)
  Receive Date: 20080312
  Receipt Date: 20080227
  Transmission Date: 20080703
  Serious: Yes (Death, Hospitalization)
  Sender: FDA-Public Use
  Company Number: WAES 0803USA00412

PATIENT
  Age: 47 Year
  Sex: Female

DRUGS (10)
  1. ZETIA [Suspect]
     Indication: HYPERCHOLESTEROLAEMIA
     Dosage: 10 MG/DAILY, PO
     Route: 048
     Dates: start: 20071210, end: 20080102
  2. ALFACALCIDOL [Concomitant]
  3. CALCIUM CARBONATE [Concomitant]
  4. EPINASTINE HYDROCHLORIDE [Concomitant]
  5. FOSFOMYCIN CALCIUM [Concomitant]
  6. LACTOBACILLUS ACIDOPHILUS [Concomitant]
  7. LANSOPRAZOLE [Concomitant]
  8. POLAPREZINC [Concomitant]
  9. POTASSIUM CHLORIDE [Concomitant]
  10. SEVELAMER HYDROCHLORIDE [Concomitant]

REACTIONS (3)
  - HAEMATEMESIS [None]
  - MELAENA [None]
  - SHOCK HAEMORRHAGIC [None]
